FAERS Safety Report 4704979-X (Version None)
Quarter: 2005Q2

REPORT INFORMATION
  Report Type: 
  Country: None (occurrence: None)
  Receive Date: 20050629
  Receipt Date: 20050629
  Transmission Date: 20051028
  Serious: No
  Sender: FDA-Public Use
  Company Number: None

PATIENT
  Sex: Male
  Weight: 64.5 kg

DRUGS (6)
  1. OXALIPLATIN [Suspect]
     Dosage: 85 MG./M2 IV OVER 2 HOURS ON DAYS 1 AND 15, EVERY 24 DAYS
     Route: 042
     Dates: start: 20050621
  2. LEUCOVORIN [Suspect]
     Dosage: 200 MG/M2 IV OVER 2 HOURS ON DAYS 1,2,15 + 16
     Route: 042
  3. FLUOROURACIL [Suspect]
     Dosage: 400 MG/M2 IV OVER 15 MIN, FOLLOWED BY 600 MG/M2 CIV OVER 22 HOURS, ON DAYS 1,2,15 + 16 EVERY 28 DAYS
     Route: 042
  4. BEVACIZUMAB [Suspect]
     Dosage: 5 MG/KG IV OVER 30-90 MIN ON DAYS 1 AND 15, EVRY 28 DAYS
     Route: 042
  5. QSI-774 [Suspect]
     Dosage: 100 MG PO QD BEGINNING ON DAY-7
     Route: 048
  6. MIDAZOLAM HCL [Concomitant]

REACTIONS (1)
  - ACUTE MYOCARDIAL INFARCTION [None]
